FAERS Safety Report 11059079 (Version 1)
Quarter: 2015Q2

REPORT INFORMATION
  Report Type: Spontaneous
  Country: US (occurrence: None)
  Receive Date: 20150420
  Receipt Date: 20150420
  Transmission Date: 20150821
  Serious: No
  Sender: FDA-Public Use
  Company Number: AEGR001165

PATIENT
  Age: 54 Year
  Sex: Male

DRUGS (19)
  1. LORATADINE. [Concomitant]
     Active Substance: LORATADINE
  2. JANUVIA [Concomitant]
     Active Substance: SITAGLIPTIN PHOSPHATE
  3. METAXALONE. [Concomitant]
     Active Substance: METAXALONE
  4. TIZANIDINE (TIZANIDINE) [Concomitant]
     Active Substance: TIZANIDINE
  5. JUXTAPID [Suspect]
     Active Substance: LOMITAPIDE MESYLATE
     Indication: TYPE IIA HYPERLIPIDAEMIA
     Route: 048
     Dates: start: 20140109, end: 20140310
  6. NYSTATIN W/TRIAMCINOLONE (NYSTATIN, TRIAMCINOLONE ACETONIDE) [Concomitant]
  7. ASPIRIN (ACETYLSALICYLIC ACID) [Concomitant]
     Active Substance: ASPIRIN
  8. CELEBREX [Concomitant]
     Active Substance: CELECOXIB
  9. FLUTICASONE PROPIONATE. [Concomitant]
     Active Substance: FLUTICASONE PROPIONATE
  10. NIACIN ER (INOSITOL NICOTINATE) [Concomitant]
  11. ANDROGEL [Concomitant]
     Active Substance: TESTOSTERONE
  12. GABAPENTIN. [Concomitant]
     Active Substance: GABAPENTIN
  13. L-CARNITINE [Concomitant]
     Active Substance: CARNITINE
  14. VASCEPA [Concomitant]
     Active Substance: ETHYL ICOSAPENTATE
  15. ZETIA [Concomitant]
     Active Substance: EZETIMIBE
  16. PANTOPRAZOLE SODIUM [Concomitant]
  17. AFRIN (PSEUDOEPHEDRINE SULFATE) [Concomitant]
  18. BOSWELLIA [Concomitant]
  19. GLIMEPIRIDE. [Concomitant]
     Active Substance: GLIMEPIRIDE

REACTIONS (2)
  - Asthma [None]
  - Vasospasm [None]

NARRATIVE: CASE EVENT DATE: 20140908
